FAERS Safety Report 11348348 (Version 1)
Quarter: 2015Q3

REPORT INFORMATION
  Report Type: Spontaneous
  Country: US (occurrence: US)
  Receive Date: 20150806
  Receipt Date: 20150806
  Transmission Date: 20151125
  Serious: No
  Sender: FDA-Public Use
  Company Number: GXBR2014US002055

PATIENT
  Age: 61 Year
  Sex: Female

DRUGS (7)
  1. ATP DISODIUM SALT [Concomitant]
     Dosage: UNK DF, UNK
  2. MAGNESIUM CITRATE. [Concomitant]
     Active Substance: MAGNESIUM CITRATE
     Dosage: UNK DF, UNK
  3. VITAMAX VITAMIN D3 [Concomitant]
     Dosage: UNK DF, UNK
  4. CHOLESTYRAMINE FOR ORAL SUSPENSION USP [Suspect]
     Active Substance: CHOLESTYRAMINE
     Indication: DETOXIFICATION
     Dosage: 4 G, QID
     Route: 048
     Dates: start: 201408
  5. MULTI VITAMIN [Concomitant]
     Active Substance: VITAMINS
     Dosage: UNK DF, UNK
  6. VITAMIN B12//CYANOCOBALAMIN [Concomitant]
     Dosage: UNK DF, UNK
  7. ANTIBIOTICS [Concomitant]
     Active Substance: UNSPECIFIED INGREDIENT
     Dosage: UNK DF, UNK

REACTIONS (1)
  - Migraine [Recovered/Resolved]

NARRATIVE: CASE EVENT DATE: 20140911
